FAERS Safety Report 8859658 (Version 1)
Quarter: 2012Q4

REPORT INFORMATION
  Report Type: 
  Country: US (occurrence: US)
  Receive Date: 20121025
  Receipt Date: 20121025
  Transmission Date: 20130627
  Serious: Yes (Other)
  Sender: FDA-Public Use
  Company Number: US-ROXANE LABORATORIES, INC.-2012-RO-02055RO

PATIENT
  Sex: Male
  Weight: 77 kg

DRUGS (1)
  1. CODEINE SULFATE [Suspect]

REACTIONS (1)
  - Anaphylactoid reaction [Unknown]
